FAERS Safety Report 11830643 (Version 4)
Quarter: 2016Q2

REPORT INFORMATION
  Report Type: Report from Study
  Country: US (occurrence: US)
  Receive Date: 20151214
  Receipt Date: 20160422
  Transmission Date: 20160815
  Serious: No
  Sender: FDA-Public Use
  Company Number: PHEH2015US025972

PATIENT
  Age: 43 Year
  Sex: Female
  Weight: 54.43 kg

DRUGS (3)
  1. CAFFEINE. [Concomitant]
     Active Substance: CAFFEINE
     Indication: PRODUCT USED FOR UNKNOWN INDICATION
     Route: 065
  2. GILENYA [Suspect]
     Active Substance: FINGOLIMOD HYDROCHLORIDE
     Indication: MULTIPLE SCLEROSIS
     Dosage: 0.5 MG, QD
     Route: 048
     Dates: start: 20150522
  3. TRIAMTERENE AND HYDROCHLOROTHIAZIDE [Concomitant]
     Active Substance: HYDROCHLOROTHIAZIDE\TRIAMTERENE
     Indication: DIURETIC THERAPY
     Dosage: 37.5MG.25MG QD
     Route: 048
     Dates: start: 20110101

REACTIONS (12)
  - Weight decreased [Recovered/Resolved]
  - Heart rate decreased [Unknown]
  - Vision blurred [Unknown]
  - Alopecia [Not Recovered/Not Resolved]
  - Palpitations [Recovered/Resolved]
  - Visual impairment [Recovered/Resolved]
  - Blood bilirubin decreased [Unknown]
  - Lymphocyte count decreased [Unknown]
  - Photophobia [Unknown]
  - Blood pressure decreased [Unknown]
  - Monocyte count increased [Unknown]
  - Alanine aminotransferase decreased [Unknown]

NARRATIVE: CASE EVENT DATE: 20150522
